FAERS Safety Report 26052927 (Version 1)
Quarter: 2025Q4

REPORT INFORMATION
  Report Type: Spontaneous
  Country: US (occurrence: US)
  Receive Date: 20251117
  Receipt Date: 20251117
  Transmission Date: 20260118
  Serious: No
  Sender: MAYNE
  Company Number: US-MAYNE PHARMA-2024MYN000562

PATIENT
  Age: 46 Year
  Sex: Female

DRUGS (1)
  1. BIJUVA [Suspect]
     Active Substance: ESTRADIOL\PROGESTERONE
     Indication: Menopausal symptoms
     Dosage: UNK UNK, QD
     Route: 065
     Dates: start: 2020

REACTIONS (3)
  - Dermatitis [Unknown]
  - Rash [Unknown]
  - Urticaria [Unknown]

NARRATIVE: CASE EVENT DATE: 20231101
